FAERS Safety Report 24180040 (Version 1)
Quarter: 2024Q3

REPORT INFORMATION
  Report Type: Report from Study
  Country: US (occurrence: None)
  Receive Date: 20240806
  Receipt Date: 20240806
  Transmission Date: 20241016
  Serious: Yes (Other)
  Sender: ASTRAZENECA
  Company Number: 2024A173330

PATIENT
  Age: 22098 Day
  Sex: Female

DRUGS (1)
  1. LYNPARZA [Suspect]
     Active Substance: OLAPARIB
     Route: 048
     Dates: start: 20240713

REACTIONS (2)
  - Carbohydrate antigen 125 increased [Unknown]
  - Skin disorder [Unknown]

NARRATIVE: CASE EVENT DATE: 20240729
